FAERS Safety Report 4640284-8 (Version None)
Quarter: 2005Q2

REPORT INFORMATION
  Report Type: 
  Country: None (occurrence: None)
  Receive Date: 20050419
  Receipt Date: 20050407
  Transmission Date: 20051028
  Serious: Yes (Other)
  Sender: FDA-Public Use
  Company Number: 2005057064

PATIENT
  Age: 52 Year
  Sex: Female
  Weight: 117.9352 kg

DRUGS (2)
  1. NICOTROL [Suspect]
     Indication: SMOKING CESSATION THERAPY
     Dosage: 1 CARTRIDGE PRN, INHALATION
     Route: 055
     Dates: start: 20050201, end: 20050319
  2. ALLEGRA-D [Concomitant]

REACTIONS (4)
  - DIZZINESS [None]
  - EUPHORIC MOOD [None]
  - NASOPHARYNGITIS [None]
  - PNEUMONIA [None]
